FAERS Safety Report 21669742 (Version 2)
Quarter: 2022Q4

REPORT INFORMATION
  Report Type: Spontaneous
  Country: US (occurrence: US)
  Receive Date: 20221201
  Receipt Date: 20221212
  Transmission Date: 20230113
  Serious: Yes (Other)
  Sender: FDA-Public Use
  Company Number: US-Calliditas-2022CAL00553

PATIENT
  Age: 68 Year
  Sex: Male

DRUGS (14)
  1. TARPEYO [Suspect]
     Active Substance: BUDESONIDE
     Indication: Haematuria
     Dosage: 16 MG (4 MG CAPSULES) DAILY
     Route: 048
     Dates: start: 20221110
  2. ASPIRIN [Concomitant]
     Active Substance: ASPIRIN
     Dosage: 81MG QD
  3. ATORVASTATIN [Concomitant]
     Active Substance: ATORVASTATIN
     Dosage: 80MG QD
  4. CALCITRIOL [Concomitant]
     Active Substance: CALCITRIOL
     Dosage: 0.25MG
  5. CARVEDILOL [Concomitant]
     Active Substance: CARVEDILOL
     Dosage: 12.5 MG QD
  6. CELLCEPT [Concomitant]
     Active Substance: MYCOPHENOLATE MOFETIL
     Dosage: 500 MG TABLETS, 2 TABLETS BID
  7. FERROUS SULFATE [Concomitant]
     Active Substance: FERROUS SULFATE
     Dosage: 325MG QD
  8. FLOMAX [Concomitant]
     Active Substance: TAMSULOSIN HYDROCHLORIDE
     Dosage: 0.4 MG QD
  9. GLIPIZIDE [Concomitant]
     Active Substance: GLIPIZIDE
     Dosage: 5 MG BID
  10. JANUVIA [Concomitant]
     Active Substance: SITAGLIPTIN PHOSPHATE
     Dosage: 50 MG QD
  11. LOSARTAN AND HYDROCHLOROTHIAZIDE [Concomitant]
     Active Substance: HYDROCHLOROTHIAZIDE\LOSARTAN POTASSIUM
     Dosage: 100/12.5 HALF TABLET A DAY
  12. PANTOPRAZOLE [Concomitant]
     Active Substance: PANTOPRAZOLE
     Dosage: 20MG
  13. PROGRAF [Concomitant]
     Active Substance: TACROLIMUS
     Dosage: 1MG TAB BID
  14. PROGRAF [Concomitant]
     Active Substance: TACROLIMUS
     Dosage: 0.5MG TAB BID

REACTIONS (3)
  - Hypertension [Not Recovered/Not Resolved]
  - Headache [Recovered/Resolved]
  - Hypertensive urgency [Unknown]

NARRATIVE: CASE EVENT DATE: 20221129
